FAERS Safety Report 23345111 (Version 1)
Quarter: 2023Q4

REPORT INFORMATION
  Report Type: Spontaneous
  Country: US (occurrence: US)
  Receive Date: 20231228
  Receipt Date: 20231228
  Transmission Date: 20240110
  Serious: No
  Sender: FDA-Public Use
  Company Number: US-OPELLA-2023OHG020173

PATIENT
  Sex: Female

DRUGS (1)
  1. DULCOLAX LAXATIVE [Suspect]
     Active Substance: BISACODYL

REACTIONS (3)
  - Faeces hard [Unknown]
  - Burning sensation [Unknown]
  - Therapeutic product effect delayed [Unknown]
